FAERS Safety Report 5695451-1 (Version None)
Quarter: 2008Q2

REPORT INFORMATION
  Report Type: 
  Country: None (occurrence: None)
  Receive Date: 20080403
  Receipt Date: 20080326
  Transmission Date: 20081010
  Serious: Yes (Hospitalization)
  Sender: FDA-Public Use
  Company Number: 163-20785-08020475

PATIENT
  Age: 73 Year
  Sex: Male

DRUGS (7)
  1. THALOMID [Suspect]
     Indication: CYTOGENETIC ANALYSIS ABNORMAL
     Dosage: 100 MG, 1 IN 1 D, ORAL; 100 MG-200MG, DAILY, ORAL
     Route: 048
     Dates: start: 20050222, end: 20060801
  2. THALOMID [Suspect]
     Indication: MULTIPLE MYELOMA
     Dosage: 100 MG, 1 IN 1 D, ORAL; 100 MG-200MG, DAILY, ORAL
     Route: 048
     Dates: start: 20050222, end: 20060801
  3. THALOMID [Suspect]
     Indication: CYTOGENETIC ANALYSIS ABNORMAL
     Dosage: 100 MG, 1 IN 1 D, ORAL; 100 MG-200MG, DAILY, ORAL
     Route: 048
     Dates: start: 20061018, end: 20080128
  4. THALOMID [Suspect]
     Indication: MULTIPLE MYELOMA
     Dosage: 100 MG, 1 IN 1 D, ORAL; 100 MG-200MG, DAILY, ORAL
     Route: 048
     Dates: start: 20061018, end: 20080128
  5. NEUPOGEN [Concomitant]
  6. PROCRIT [Concomitant]
  7. DECADRON [Concomitant]

REACTIONS (6)
  - CONSTIPATION [None]
  - FATIGUE [None]
  - INFERIOR VENA CAVAL OCCLUSION [None]
  - INTESTINAL OBSTRUCTION [None]
  - NO THERAPEUTIC RESPONSE [None]
  - PYREXIA [None]
